FAERS Safety Report 25470772 (Version 1)
Quarter: 2025Q2

REPORT INFORMATION
  Report Type: Report from Study
  Country: US (occurrence: US)
  Receive Date: 20250624
  Receipt Date: 20250624
  Transmission Date: 20250717
  Serious: No
  Sender: SUNOVION
  Company Number: US-SUMITOMO PHARMA SWITZERLAND GMBH-2025SPA006837

PATIENT

DRUGS (14)
  1. ORGOVYX [Suspect]
     Active Substance: RELUGOLIX
     Indication: Prostate cancer
     Dosage: 120 MG, QD
     Route: 048
  2. AMYGDALIN [Concomitant]
     Active Substance: AMYGDALIN
     Route: 065
  3. FENBENDAZOLE [Concomitant]
     Active Substance: FENBENDAZOLE
     Route: 065
  4. FISH OIL [Concomitant]
     Active Substance: FISH OIL
     Route: 065
  5. FLAXSEED [Concomitant]
     Active Substance: FLAX SEED
     Route: 065
  6. Graviola [Concomitant]
     Route: 065
  7. Holy basil [Concomitant]
     Route: 065
  8. IVERMECTIN [Concomitant]
     Active Substance: IVERMECTIN
     Route: 065
  9. HERBALS\MITRAGYNINE [Concomitant]
     Active Substance: HERBALS\MITRAGYNINE
     Route: 065
  10. MAGNESIUM [Concomitant]
     Active Substance: MAGNESIUM
     Route: 065
  11. PAPAYA [Concomitant]
     Active Substance: PAPAYA
     Route: 065
  12. HERBALS\TURMERIC [Concomitant]
     Active Substance: HERBALS\TURMERIC
     Route: 065
  13. VITAMIN C [Concomitant]
     Active Substance: ASCORBIC ACID
     Route: 065
  14. VITAMIN D3 [Concomitant]
     Active Substance: CHOLECALCIFEROL
     Route: 065

REACTIONS (3)
  - Vision blurred [Unknown]
  - Hot flush [Unknown]
  - Asthenia [Unknown]
